FAERS Safety Report 16191949 (Version 2)
Quarter: 2019Q2

REPORT INFORMATION
  Report Type: Report from Study
  Country: US (occurrence: US)
  Receive Date: 20190412
  Receipt Date: 20190509
  Transmission Date: 20190711
  Serious: Yes (Hospitalization, Other)
  Sender: FDA-Public Use
  Company Number: US-BIOGEN-2019BI00721852

PATIENT
  Age: 12 Year
  Sex: Male

DRUGS (3)
  1. SPINRAZA [Suspect]
     Active Substance: NUSINERSEN
     Dosage: 4TH LOADING DOSE ONCE AFTER 30 DAYS
     Route: 037
  2. SPINRAZA [Suspect]
     Active Substance: NUSINERSEN
     Indication: SPINAL MUSCULAR ATROPHY
     Dosage: FIRST 3 LOADING DOSES EVERY 14 DAYS
     Route: 037
     Dates: start: 20170505
  3. SPINRAZA [Suspect]
     Active Substance: NUSINERSEN
     Dosage: MAINTENANCE DOSES: ONCE EVERY 4 MONTHS.
     Route: 037

REACTIONS (6)
  - Cerebrospinal fluid leakage [Recovered/Resolved]
  - Subdural haematoma [Unknown]
  - Off label use [Recovered/Resolved]
  - Pharyngitis streptococcal [Recovered/Resolved]
  - Neurological procedural complication [Recovered/Resolved]
  - Dehydration [Recovered/Resolved]

NARRATIVE: CASE EVENT DATE: 20190327
